FAERS Safety Report 23043580 (Version 2)
Quarter: 2023Q4

REPORT INFORMATION
  Report Type: Spontaneous
  Country: US (occurrence: US)
  Receive Date: 20231009
  Receipt Date: 20231218
  Transmission Date: 20240110
  Serious: Yes (Life-Threatening, Hospitalization, Other)
  Sender: FDA-Public Use
  Company Number: US-BRISTOL-MYERS SQUIBB COMPANY-2023-140417

PATIENT
  Age: 21 Year
  Sex: Male

DRUGS (4)
  1. BELATACEPT [Suspect]
     Active Substance: BELATACEPT
     Indication: Heart transplant
  2. MYCOPHENOLATE MOFETIL [Suspect]
     Active Substance: MYCOPHENOLATE MOFETIL
     Indication: Heart transplant
  3. TACROLIMUS [Suspect]
     Active Substance: TACROLIMUS
     Indication: Heart transplant
  4. PREDNISONE [Suspect]
     Active Substance: PREDNISONE
     Indication: Heart transplant

REACTIONS (10)
  - Mycoplasma infection [Recovered/Resolved]
  - Off label use [Unknown]
  - Cardiac dysfunction [Unknown]
  - Rhinovirus infection [Unknown]
  - Enterovirus infection [Unknown]
  - Leukocytosis [Unknown]
  - Vasculitis [Unknown]
  - Colitis ischaemic [Unknown]
  - Peritonitis [Unknown]
  - Histoplasmosis disseminated [Unknown]
